FAERS Safety Report 4395297-0 (Version None)
Quarter: 2004Q2

REPORT INFORMATION
  Report Type: 
  Country: None (occurrence: None)
  Receive Date: 20040621
  Receipt Date: 20031023
  Transmission Date: 20050107
  Serious: Yes (Death, Other)
  Sender: FDA-Public Use
  Company Number: USA-2003-0010436

PATIENT
  Age: 27 Year
  Sex: Male
  Weight: 130.6 kg

DRUGS (9)
  1. OXYCONTIN [Suspect]
     Indication: PAIN
     Dosage: 80 MG
     Dates: start: 20001001
  2. OXYCODONE HCL [Suspect]
  3. MS CONTIN [Suspect]
  4. HEROIN (DIAMORPHINE) [Suspect]
  5. CODEINE (CODEINE) [Suspect]
  6. METHADONE HCL [Suspect]
  7. DILAUDID [Suspect]
  8. COCAINE (COCAINE) [Suspect]
  9. CAFFEINE (CAFFEINE) [Suspect]

REACTIONS (5)
  - ACCIDENTAL OVERDOSE [None]
  - DRUG ABUSER [None]
  - DRUG DEPENDENCE [None]
  - DRUG WITHDRAWAL SYNDROME [None]
  - MULTIPLE DRUG OVERDOSE [None]
